FAERS Safety Report 18245611 (Version 1)
Quarter: 2020Q3

REPORT INFORMATION
  Report Type: Spontaneous
  Country: US (occurrence: US)
  Receive Date: 20200909
  Receipt Date: 20200909
  Transmission Date: 20201103
  Serious: Yes (Other)
  Sender: FDA-Public Use
  Company Number: None

PATIENT
  Age: 58 Year
  Sex: Female
  Weight: 60.75 kg

DRUGS (20)
  1. FAMOTIDINE. [Concomitant]
     Active Substance: FAMOTIDINE
  2. NORCO [Concomitant]
     Active Substance: ACETAMINOPHEN\HYDROCODONE BITARTRATE
  3. PROMETHAZINE [Concomitant]
     Active Substance: PROMETHAZINE HYDROCHLORIDE
  4. TRAZODONE [Concomitant]
     Active Substance: TRAZODONE HYDROCHLORIDE
  5. MVI [Concomitant]
     Active Substance: VITAMINS
  6. FENTANYL. [Concomitant]
     Active Substance: FENTANYL
  7. SULFASALAZINE. [Concomitant]
     Active Substance: SULFASALAZINE
  8. LANSOPRAZOLE. [Concomitant]
     Active Substance: LANSOPRAZOLE
  9. BACLOFEN. [Concomitant]
     Active Substance: BACLOFEN
  10. TIROSINT [Concomitant]
     Active Substance: LEVOTHYROXINE SODIUM
  11. WELLBUTRIN [Concomitant]
     Active Substance: BUPROPION HYDROCHLORIDE
  12. TIZANIDINE. [Suspect]
     Active Substance: TIZANIDINE
     Indication: PAIN
  13. PLAQUENIL [Concomitant]
     Active Substance: HYDROXYCHLOROQUINE SULFATE
  14. DESIPRAMINE [Concomitant]
     Active Substance: DESIPRAMINE
  15. RIZATRIPTAN. [Concomitant]
     Active Substance: RIZATRIPTAN
  16. TYLENOL [Concomitant]
     Active Substance: ACETAMINOPHEN
  17. TIZANIDINE. [Suspect]
     Active Substance: TIZANIDINE
     Indication: FIBROMYALGIA
  18. ROPINIROLE. [Concomitant]
     Active Substance: ROPINIROLE
  19. SUCRALFATE. [Concomitant]
     Active Substance: SUCRALFATE
  20. IBUPROFEN. [Concomitant]
     Active Substance: IBUPROFEN

REACTIONS (3)
  - Generalised oedema [None]
  - Peripheral swelling [None]
  - Joint swelling [None]

NARRATIVE: CASE EVENT DATE: 20200820
